FAERS Safety Report 8193834-1 (Version None)
Quarter: 2012Q1

REPORT INFORMATION
  Report Type: 
  Country: None (occurrence: None)
  Receive Date: 20120308
  Receipt Date: 20120228
  Transmission Date: 20120608
  Serious: Yes (Hospitalization)
  Sender: FDA-Public Use
  Company Number: FR-PURDUE-GBR-2012-0009860

PATIENT
  Age: 31 Year
  Sex: Male

DRUGS (9)
  1. ACETAMINOPHEN [Concomitant]
     Dosage: 500 MG, PRN
     Dates: start: 20120201
  2. OXYCODONE HYDROCHLORIDE [Suspect]
     Dosage: 1 DF, UNK 6 TIMES A DAY
     Route: 048
     Dates: start: 20110401, end: 20120204
  3. LYOVAC [Concomitant]
     Dosage: 1.3 MG, SINGLE
     Dates: start: 20120202
  4. OXYCONTIN [Suspect]
     Indication: PAIN
     Dosage: 1.5 TABLET, BID
     Route: 048
     Dates: start: 20110401, end: 20120204
  5. JAMYLENE                           /00080501/ [Concomitant]
     Dosage: 2 DF, DAILY
     Dates: start: 20120201
  6. EMEND [Concomitant]
     Dosage: 125 MG, SINGLE
     Dates: start: 20120202
  7. IMIPENEM [Concomitant]
     Dosage: UNK
     Dates: start: 20120203, end: 20120207
  8. ALPRAZOLAM [Suspect]
     Indication: PRODUCT USED FOR UNKNOWN INDICATION
     Dosage: 0.25 MG, PM
     Route: 048
     Dates: start: 20110401
  9. AUGMENTIN                          /00756801/ [Concomitant]
     Dosage: 6 DF, DAILY
     Dates: start: 20120201, end: 20120202

REACTIONS (2)
  - HYPOTHERMIA [None]
  - OVERDOSE [None]
